FAERS Safety Report 9153673 (Version 1)
Quarter: 2013Q1

REPORT INFORMATION
  Report Type: Spontaneous
  Country: US (occurrence: None)
  Receive Date: 20130206
  Receipt Date: 20130206
  Transmission Date: 20140127
  Serious: Yes (Hospitalization)
  Sender: FDA-Public Use
  Company Number: 2013P1001627

PATIENT
  Age: 51 Year
  Sex: Male
  Weight: 66.3 kg

DRUGS (10)
  1. LANOXIN [Suspect]
     Route: 048
     Dates: start: 20111206, end: 20120318
  2. SILDENAFIL [Suspect]
     Indication: PULMONARY ARTERIAL HYPERTENSION
     Dates: start: 201003
  3. PRILOSEC [Concomitant]
  4. INTERFERON ALFACON-1 (INJECTION) [Concomitant]
  5. EPOGEN (EPOETIN ALFA) [Concomitant]
  6. RENVELA (SEVELAMER CARBONATE) [Concomitant]
  7. SENSIPAR (CINACALCET HYDROCHLORIDE) [Concomitant]
  8. ZOLOFT (SERTRALINE) [Concomitant]
  9. COLACE (DOCULSATE SODIUM) [Concomitant]
  10. OXYGEN 2-3 L VIA NASAL CANNULA [Concomitant]

REACTIONS (8)
  - Dyspnoea [None]
  - Chills [None]
  - Nausea [None]
  - Oxygen saturation decreased [None]
  - Crepitations [None]
  - Anxiety [None]
  - Hyperventilation [None]
  - Cardioactive drug level increased [None]
